FAERS Safety Report 5744616-9 (Version None)
Quarter: 2008Q2

REPORT INFORMATION
  Report Type: 
  Country: None (occurrence: None)
  Receive Date: 20080520
  Receipt Date: 20080317
  Transmission Date: 20081010
  Serious: No
  Sender: FDA-Public Use
  Company Number: US-ABBOTT-08P-163-0442868-00

PATIENT
  Sex: Female
  Weight: 99.88 kg

DRUGS (1)
  1. AZMACORT INHALATION [Suspect]
     Indication: ASTHMA
     Route: 048
     Dates: start: 20080317

REACTIONS (1)
  - UNDERDOSE [None]
